FAERS Safety Report 10144019 (Version 1)
Quarter: 2014Q2

REPORT INFORMATION
  Report Type: Spontaneous
  Country: CN (occurrence: CN)
  Receive Date: 20140430
  Receipt Date: 20140430
  Transmission Date: 20141212
  Serious: Yes (Hospitalization)
  Sender: FDA-Public Use
  Company Number: CN-009507513-1404CHN013726

PATIENT
  Age: 64 Year
  Sex: Male

DRUGS (1)
  1. TIENAM [Suspect]
     Dosage: UNK, TID
     Route: 042
     Dates: start: 20130728, end: 20130805

REACTIONS (1)
  - Yellow skin [Recovered/Resolved]
